FAERS Safety Report 9748882 (Version 2)
Quarter: 2013Q4

REPORT INFORMATION
  Report Type: Spontaneous
  Country: US (occurrence: US)
  Receive Date: 20131212
  Receipt Date: 20131212
  Transmission Date: 20140711
  Serious: No
  Sender: FDA-Public Use
  Company Number: US-INCYTE CORPORATION-2013IN001878

PATIENT
  Age: 67 Year
  Sex: Female

DRUGS (2)
  1. JAKAFI [Suspect]
     Indication: MYELOFIBROSIS
     Dosage: 20 MG, BID
     Route: 048
     Dates: end: 20130813
  2. JAKAFI [Suspect]
     Dosage: 20 MG, QD
     Route: 048
     Dates: start: 20130813

REACTIONS (6)
  - Abdominal pain [Not Recovered/Not Resolved]
  - Pyrexia [Recovering/Resolving]
  - Diarrhoea [Not Recovered/Not Resolved]
  - Urinary tract infection [None]
  - Platelet count decreased [Not Recovered/Not Resolved]
  - Haemoglobin decreased [Not Recovered/Not Resolved]
